FAERS Safety Report 6010984-6 (Version None)
Quarter: 2008Q4

REPORT INFORMATION
  Report Type: 
  Country: None (occurrence: None)
  Receive Date: 20081218
  Receipt Date: 20081211
  Transmission Date: 20090506
  Serious: Yes (Hospitalization)
  Sender: FDA-Public Use
  Company Number: B0550138A

PATIENT
  Age: 81 Year
  Sex: Male

DRUGS (8)
  1. CLAMOXYL [Suspect]
     Indication: URINARY TRACT INFECTION
     Dosage: 750MG THREE TIMES PER DAY
     Route: 048
     Dates: start: 20080930, end: 20081011
  2. CIPROFLOXACIN HCL [Suspect]
     Indication: URINARY TRACT INFECTION
     Dosage: 500MG TWICE PER DAY
     Route: 048
     Dates: start: 20080930, end: 20081011
  3. IOXITALAMIC ACID [Suspect]
     Indication: DRUG USE FOR UNKNOWN INDICATION
     Dates: start: 20081010, end: 20081010
  4. FOLIC ACID [Concomitant]
     Dosage: 5MG PER DAY
     Route: 048
     Dates: end: 20081011
  5. FERRUM HAUSMANN [Concomitant]
     Dosage: 100MG PER DAY
     Route: 048
     Dates: end: 20081011
  6. EXFORGE [Concomitant]
     Route: 048
  7. IMPORTAL [Concomitant]
     Route: 048
     Dates: end: 20081011
  8. IBEROGAST [Concomitant]
     Route: 048
     Dates: end: 20081011

REACTIONS (2)
  - MOUTH INJURY [None]
  - RASH MACULAR [None]
